FAERS Safety Report 4491573-1 (Version None)
Quarter: 2004Q4

REPORT INFORMATION
  Report Type: 
  Country: None (occurrence: None)
  Receive Date: 20041103
  Receipt Date: 20041021
  Transmission Date: 20050328
  Serious: Yes (Hospitalization)
  Sender: FDA-Public Use
  Company Number: CA-AMGEN-US097646

PATIENT
  Sex: Female

DRUGS (9)
  1. ENBREL [Suspect]
     Indication: PSORIATIC ARTHROPATHY
     Route: 058
  2. PREDNISONE [Concomitant]
     Route: 048
  3. L-THYROXIN [Concomitant]
     Route: 048
  4. METHOTREXATE [Concomitant]
     Route: 058
  5. PANTOPRAZOLE SODIUM [Concomitant]
     Route: 048
  6. FOSAMAX [Concomitant]
     Route: 048
  7. VIOXX [Concomitant]
     Route: 048
  8. LEUCOVORIN CALCIUM [Concomitant]
     Route: 048
  9. CALTRATE [Concomitant]
     Route: 048

REACTIONS (10)
  - ACUTE RESPIRATORY FAILURE [None]
  - ANXIETY [None]
  - DELIRIUM [None]
  - DYSPHAGIA [None]
  - GASTROOESOPHAGEAL REFLUX DISEASE [None]
  - HYPERGLYCAEMIA [None]
  - ORAL CANDIDIASIS [None]
  - PNEUMONIA ASPIRATION [None]
  - PNEUMONITIS [None]
  - URINARY RETENTION [None]
